FAERS Safety Report 25806435 (Version 2)
Quarter: 2025Q4

REPORT INFORMATION
  Report Type: Spontaneous
  Country: EU (occurrence: EU)
  Receive Date: 20250916
  Receipt Date: 20251003
  Transmission Date: 20260117
  Serious: Yes (Hospitalization, Other)
  Sender: REGENERON
  Company Number: EU-BAYER-2025A121213

PATIENT
  Sex: Male

DRUGS (2)
  1. EYLEA [Suspect]
     Active Substance: AFLIBERCEPT
     Indication: Neovascular age-related macular degeneration
     Dosage: 2 MG, BOTH EYES, TOTAL OF 26 DOSES IN RIGHT EYE PRIOR TO ADVERSE EVENT, SOLUTION FOR INJECTION, 40 M
     Route: 031
     Dates: start: 20250630
  2. EYLEA [Suspect]
     Active Substance: AFLIBERCEPT
     Dosage: 2 MG, BOTH EYES, TOTAL OF 30 DOSES IN LEFT EYE PRIOR TO ADVERSE EVENT, SOLUTION FOR INJECTION, 40 MG
     Dates: start: 20250707

REACTIONS (2)
  - Monoparesis [Not Recovered/Not Resolved]
  - Cerebrovascular accident [Not Recovered/Not Resolved]

NARRATIVE: CASE EVENT DATE: 20250811
